FAERS Safety Report 6720294-7 (Version None)
Quarter: 2010Q2

REPORT INFORMATION
  Report Type: 
  Country: None (occurrence: None)
  Receive Date: 20100511
  Receipt Date: 20100503
  Transmission Date: 20101027
  Serious: Yes (Other)
  Sender: FDA-Public Use
  Company Number: US-PFIZER INC-2006015943

PATIENT
  Sex: Female
  Weight: 70 kg

DRUGS (6)
  1. PROVERA [Suspect]
     Indication: HORMONE REPLACEMENT THERAPY
     Dosage: 2.5 MG, 1X/DAY
     Route: 065
     Dates: start: 19910710, end: 19970717
  2. PREMARIN [Suspect]
     Indication: HORMONE REPLACEMENT THERAPY
     Route: 065
     Dates: start: 19900101, end: 19970101
  3. ESTRADERM [Suspect]
     Indication: HORMONE REPLACEMENT THERAPY
     Dosage: 0.5 MG, UNK
     Route: 065
     Dates: start: 19910502, end: 19960624
  4. CLIMARA [Suspect]
     Indication: HORMONE REPLACEMENT THERAPY
     Dosage: 0.5 MG, UNK
     Route: 065
     Dates: start: 19960624, end: 19970717
  5. PREMPRO [Suspect]
     Indication: HORMONE REPLACEMENT THERAPY
     Dosage: UNK
     Route: 065
     Dates: start: 19970717, end: 19990801
  6. CEPHALEXIN [Concomitant]
     Indication: MITRAL VALVE PROLAPSE
     Dosage: UNK
     Dates: start: 19800101

REACTIONS (1)
  - BREAST CANCER [None]
